FAERS Safety Report 8953583 (Version 2)
Quarter: 2013Q1

REPORT INFORMATION
  Report Type: Report from Study
  Country: BR (occurrence: BR)
  Receive Date: 20121206
  Receipt Date: 20130321
  Transmission Date: 20140127
  Serious: Yes (Hospitalization, Other)
  Sender: FDA-Public Use
  Company Number: BR-ABBOTT-12P-020-1018083-00

PATIENT
  Age: 50 None
  Sex: Female
  Weight: 67 kg

DRUGS (6)
  1. HUMIRA [Suspect]
     Indication: RHEUMATOID ARTHRITIS
     Route: 058
     Dates: start: 20100202
  2. RIVOTRIL [Concomitant]
     Indication: PRODUCT USED FOR UNKNOWN INDICATION
     Dosage: 1 TABLET DAILY
     Route: 048
     Dates: start: 2008
  3. ENALAPRIL [Concomitant]
     Indication: BLOOD PRESSURE
     Dosage: 1 TABLET DAILY
     Route: 048
     Dates: start: 2008
  4. FLUOXETIN [Concomitant]
     Indication: DEPRESSION
     Dosage: 1 TABLET DAILY
     Route: 048
     Dates: start: 2008
  5. UNKNOWN DRUG [Concomitant]
     Indication: DEPRESSION
     Dosage: 1 TABLET DAILY
     Route: 048
     Dates: start: 2008
  6. METHOTREXATE [Concomitant]
     Indication: ARTHRITIS
     Dosage: 2 TABLETS DAILY
     Route: 048
     Dates: start: 2008

REACTIONS (5)
  - Convulsion [Recovered/Resolved]
  - Arthralgia [Recovered/Resolved]
  - Arthralgia [Unknown]
  - Blood pressure abnormal [Recovered/Resolved]
  - Swelling [Recovering/Resolving]
